FAERS Safety Report 11118302 (Version 1)
Quarter: 2015Q2

REPORT INFORMATION
  Report Type: Spontaneous
  Country: US (occurrence: US)
  Receive Date: 20150518
  Receipt Date: 20150518
  Transmission Date: 20150821
  Serious: Yes (Hospitalization)
  Sender: FDA-Public Use
  Company Number: US-JNJFOC-20150505202

PATIENT
  Age: 52 Year
  Sex: Male
  Weight: 95.26 kg

DRUGS (1)
  1. XARELTO [Suspect]
     Active Substance: RIVAROXABAN
     Indication: ANTIPHOSPHOLIPID SYNDROME
     Route: 048
     Dates: end: 201504

REACTIONS (6)
  - Off label use [Unknown]
  - Weight decreased [Not Recovered/Not Resolved]
  - Splenic haemorrhage [Unknown]
  - Cerebral haemorrhage [Unknown]
  - Aortic valve disease [Unknown]
  - Renal haemorrhage [Unknown]

NARRATIVE: CASE EVENT DATE: 201503
